FAERS Safety Report 25977969 (Version 3)
Quarter: 2025Q4

REPORT INFORMATION
  Report Type: Spontaneous
  Country: US (occurrence: US)
  Receive Date: 20251030
  Receipt Date: 20251204
  Transmission Date: 20260118
  Serious: Yes (Other)
  Sender: TEVA
  Company Number: US-TEVA-VS-3384405

PATIENT
  Age: 10 Year
  Sex: Male

DRUGS (8)
  1. TREPROSTINIL [Suspect]
     Active Substance: TREPROSTINIL
     Indication: Pulmonary hypertension
     Route: 058
  2. TREPROSTINIL [Suspect]
     Active Substance: TREPROSTINIL
     Indication: Pulmonary hypertension
     Route: 058
  3. CLOBETASOL [Suspect]
     Active Substance: CLOBETASOL
     Indication: Skin reaction
     Route: 061
  4. CHLORHEXIDINE [Concomitant]
     Active Substance: CHLORHEXIDINE
     Indication: Infection prophylaxis
     Route: 065
  5. CHLORHEXIDINE [Suspect]
     Active Substance: CHLORHEXIDINE
     Indication: Wound treatment
     Dosage: ADHESIVE BIOPATCH
     Route: 065
  6. TRIAMCINOLONE [Suspect]
     Active Substance: TRIAMCINOLONE
     Indication: Skin reaction
     Route: 065
  7. CHLORHEXIDINE GLUCONATE [Suspect]
     Active Substance: CHLORHEXIDINE GLUCONATE
     Indication: Wound treatment
     Dosage: ADHESIVE
     Route: 065
  8. POVIDONE-IODINE [Concomitant]
     Active Substance: POVIDONE-IODINE
     Indication: Infection prophylaxis
     Route: 065

REACTIONS (11)
  - Therapy non-responder [Unknown]
  - Device dislocation [Unknown]
  - Pruritus [Recovered/Resolved]
  - Rash [Recovered/Resolved]
  - Skin reaction [Recovered/Resolved]
  - Pruritus [Recovered/Resolved]
  - Lichenification [Recovered/Resolved]
  - Skin irritation [Recovered/Resolved]
  - Dermatitis atopic [Recovered/Resolved]
  - Skin hyperpigmentation [Unknown]
  - Infusion site reaction [Recovered/Resolved]
